FAERS Safety Report 13829910 (Version 9)
Quarter: 2020Q2

REPORT INFORMATION
  Report Type: Spontaneous
  Country: US (occurrence: US)
  Receive Date: 20170803
  Receipt Date: 20200401
  Transmission Date: 20200713
  Serious: Yes (Hospitalization, Other)
  Sender: FDA-Public Use
  Company Number: US-TEVA-771535USA

PATIENT
  Age: 40 Year
  Sex: Female

DRUGS (5)
  1. SORIATANE [Suspect]
     Active Substance: ACITRETIN
     Indication: KERATOSIS FOLLICULAR
     Dosage: 20 MILLIGRAM DAILY; SINCE YEARS
     Route: 048
     Dates: start: 2006
  2. SORIATANE [Suspect]
     Active Substance: ACITRETIN
     Indication: SKIN DISORDER
     Dosage: 10 MILLIGRAM DAILY;
     Route: 048
     Dates: start: 2009
  3. SORIATANE [Suspect]
     Active Substance: ACITRETIN
     Indication: PSORIASIS
     Dosage: 20 MILLIGRAM DAILY;
     Route: 048
     Dates: start: 2007
  4. SORIATANE [Suspect]
     Active Substance: ACITRETIN
     Route: 065
     Dates: start: 2010
  5. SORIATANE [Suspect]
     Active Substance: ACITRETIN
     Indication: PRODUCT USED FOR UNKNOWN INDICATION
     Route: 065
     Dates: start: 2009

REACTIONS (9)
  - Skin infection [Recovering/Resolving]
  - Seizure [Unknown]
  - Infection [Unknown]
  - Generalised oedema [Unknown]
  - Staphylococcal infection [Unknown]
  - Skin reaction [Unknown]
  - Product dose omission [Unknown]
  - Cellulitis [Unknown]
  - Skin ulcer [Unknown]
